FAERS Safety Report 5847185-8 (Version None)
Quarter: 2008Q3

REPORT INFORMATION
  Report Type: 
  Country: None (occurrence: None)
  Receive Date: 20080815
  Receipt Date: 20080808
  Transmission Date: 20090109
  Serious: Yes (Other)
  Sender: FDA-Public Use
  Company Number: PHHY2008BR17340

PATIENT
  Age: 96 Year
  Sex: Male

DRUGS (3)
  1. EXELON [Suspect]
     Dosage: 6 MG
  2. EXELON [Suspect]
     Dosage: 4.5 MG
  3. DORMONID [Concomitant]

REACTIONS (3)
  - DEPRESSION [None]
  - MOOD ALTERED [None]
  - SUICIDAL IDEATION [None]
